FAERS Safety Report 20006531 (Version 1)
Quarter: 2021Q4

REPORT INFORMATION
  Report Type: Spontaneous
  Country: US (occurrence: US)
  Receive Date: 20211028
  Receipt Date: 20211028
  Transmission Date: 20220303
  Serious: Yes (Other)
  Sender: FDA-Public Use
  Company Number: None

PATIENT
  Age: 58 Year
  Sex: Female
  Weight: 92.7 kg

DRUGS (1)
  1. IBUPROFEN [Suspect]
     Active Substance: IBUPROFEN
     Indication: Back pain
     Dosage: ?          QUANTITY:42 TABLET(S);
     Route: 048
     Dates: start: 20211008, end: 20211025

REACTIONS (2)
  - Headache [None]
  - Product odour abnormal [None]

NARRATIVE: CASE EVENT DATE: 20211008
